FAERS Safety Report 4299431-2 (Version None)
Quarter: 2004Q1

REPORT INFORMATION
  Report Type: 
  Country: None (occurrence: None)
  Receive Date: 20040219
  Receipt Date: 20030708
  Transmission Date: 20041129
  Serious: Yes (Other)
  Sender: FDA-Public Use
  Company Number: WAES 0307CAN00020

PATIENT
  Age: 66 Year
  Sex: Female
  Weight: 65 kg

DRUGS (5)
  1. HYDROCHLOROTHIAZIDE AND IRBESARTAN [Concomitant]
     Indication: HYPERTENSION
     Dates: start: 20010901, end: 20030620
  2. COZAAR [Suspect]
     Indication: HYPERTENSION
     Route: 048
     Dates: start: 20030621, end: 20030601
  3. METFORMIN [Concomitant]
     Indication: DIABETES MELLITUS
     Dates: start: 20010901
  4. SENNA [Concomitant]
     Indication: CONSTIPATION
     Dates: start: 20010901
  5. WARFARIN SODIUM [Concomitant]
     Indication: CEREBRAL THROMBOSIS
     Dates: start: 20010901

REACTIONS (1)
  - HYPERTENSIVE CRISIS [None]
